FAERS Safety Report 26219277 (Version 1)
Quarter: 2025Q4

REPORT INFORMATION
  Report Type: Spontaneous
  Country: US (occurrence: US)
  Receive Date: 20251231
  Receipt Date: 20251231
  Transmission Date: 20260118
  Serious: No
  Sender: PFIZER
  Company Number: US-PFIZER INC-PV202500152884

PATIENT
  Age: 71 Year
  Sex: Female

DRUGS (2)
  1. PRISTIQ EXTENDED-RELEASE [Suspect]
     Active Substance: DESVENLAFAXINE SUCCINATE
     Dosage: UNK
  2. TRYPTYR [Suspect]
     Active Substance: ACOLTREMON
     Dosage: 1 DROP, 2X/DAY (INSTILL 1 DROP IN BOTH EYES TWICE DAILY)
     Route: 047
     Dates: start: 20251123, end: 20251210

REACTIONS (3)
  - Fall [Unknown]
  - Concussion [Unknown]
  - Eye irritation [Unknown]
